FAERS Safety Report 11427986 (Version 1)
Quarter: 2015Q3

REPORT INFORMATION
  Report Type: Spontaneous
  Country: US (occurrence: None)
  Receive Date: 20150827
  Receipt Date: 20150827
  Transmission Date: 20151125
  Serious: Yes (Other)
  Sender: FDA-Public Use
  Company Number: None

PATIENT
  Age: 56 Year
  Sex: Male
  Weight: 86 kg

DRUGS (3)
  1. CARFILZOMIB [Suspect]
     Active Substance: CARFILZOMIB
     Indication: PLASMA CELL MYELOMA
     Dosage: ONCE OVER 30 MINS??02/17/2015   1750
     Route: 042
     Dates: start: 20150217
  2. ZOMETA [Concomitant]
     Active Substance: ZOLEDRONIC ACID
  3. SODIUM CHLORIDE. [Concomitant]
     Active Substance: SODIUM CHLORIDE

REACTIONS (3)
  - Infusion site erythema [None]
  - Infusion site oedema [None]
  - Infusion site extravasation [None]

NARRATIVE: CASE EVENT DATE: 20150217
